FAERS Safety Report 5671196-9 (Version None)
Quarter: 2008Q1

REPORT INFORMATION
  Report Type: 
  Country: None (occurrence: None)
  Receive Date: 20080318
  Receipt Date: 20080310
  Transmission Date: 20080703
  Serious: Yes (Hospitalization)
  Sender: FDA-Public Use
  Company Number: JP-ELI_LILLY_AND_COMPANY-JP200801006431

PATIENT
  Sex: Female
  Weight: 33.7 kg

DRUGS (11)
  1. RALOXIFENE HYDROCHLORIDE [Suspect]
     Indication: OSTEOPOROSIS POSTMENOPAUSAL
     Dosage: 60 MG, DAILY (1/D)
     Route: 048
     Dates: start: 20050515, end: 20060909
  2. TIEKAPTO [Concomitant]
     Indication: GASTRIC ULCER
     Dosage: 200 MG, EACH MORNING
     Route: 048
     Dates: start: 20050701
  3. TIEKAPTO [Concomitant]
     Dosage: 200 MG, EACH EVENING
     Route: 048
     Dates: start: 20050701
  4. TANATRIL [Concomitant]
     Indication: HYPERTENSION
     Dosage: 5 MG, EACH MORNING
     Route: 048
  5. ASPIRIN [Concomitant]
     Indication: PROPHYLAXIS
     Dosage: 100 MG, EACH MORNING
     Route: 048
  6. PAXIL [Concomitant]
     Indication: DEPRESSION
     Dosage: 10 MG, EACH EVENING
     Route: 048
  7. CONIEL [Concomitant]
     Indication: HYPERTENSION
     Dosage: 4 MG, EACH MORNING
     Route: 048
  8. CONIEL [Concomitant]
     Dosage: 4 MG, EACH EVENING
     Route: 048
  9. RIZE [Concomitant]
     Indication: INSOMNIA
     Dosage: 5 MG, EACH MORNING
     Route: 048
  10. RIZE [Concomitant]
     Dosage: 5 MG, DAILY (1/D)
     Route: 048
  11. RIZE [Concomitant]
     Dosage: 5 MG, EACH EVENING
     Route: 048

REACTIONS (1)
  - PNEUMONIA [None]
